FAERS Safety Report 6045526-2 (Version None)
Quarter: 2009Q1

REPORT INFORMATION
  Report Type: 
  Country: None (occurrence: None)
  Receive Date: 20090121
  Receipt Date: 20090119
  Transmission Date: 20090719
  Serious: Yes (Other)
  Sender: FDA-Public Use
  Company Number: B0543793A

PATIENT
  Age: 8 Month
  Sex: Female
  Weight: 8 kg

DRUGS (5)
  1. CLAVAMOX [Suspect]
     Indication: OTITIS MEDIA ACUTE
     Dosage: .6G TWICE PER DAY
     Route: 048
     Dates: start: 20081003, end: 20081007
  2. UNKNOWN DRUG [Concomitant]
     Route: 048
     Dates: start: 20081003, end: 20081007
  3. MUCODYNE [Concomitant]
     Route: 048
     Dates: start: 20081003, end: 20081007
  4. POLARAMINE [Concomitant]
     Route: 048
     Dates: start: 20081003, end: 20081007
  5. BIOFERMIN R [Concomitant]
     Route: 048

REACTIONS (1)
  - DRUG ERUPTION [None]
